FAERS Safety Report 12000891 (Version 1)
Quarter: 2016Q1

REPORT INFORMATION
  Report Type: Spontaneous
  Country: FR (occurrence: FR)
  Receive Date: 20160204
  Receipt Date: 20160204
  Transmission Date: 20160526
  Serious: Yes (Hospitalization)
  Sender: FDA-Public Use
  Company Number: FR-GLAXOSMITHKLINE-FR2016GSK012510

PATIENT
  Age: 80 Year
  Sex: Female

DRUGS (6)
  1. NATISPRAY [Suspect]
     Active Substance: NITROGLYCERIN
     Indication: COUGH
  2. NATISPRAY [Suspect]
     Active Substance: NITROGLYCERIN
     Indication: PRODUCTIVE COUGH
  3. NATISPRAY [Suspect]
     Active Substance: NITROGLYCERIN
     Indication: DYSPNOEA
     Dosage: UNK
     Route: 055
     Dates: start: 20160102, end: 20160102
  4. VENTOLINE [Concomitant]
     Active Substance: ALBUTEROL
     Indication: PRODUCT USED FOR UNKNOWN INDICATION
  5. JANUMET [Concomitant]
     Active Substance: METFORMIN HYDROCHLORIDE\SITAGLIPTIN PHOSPHATE
     Indication: PRODUCT USED FOR UNKNOWN INDICATION
  6. VENTOLINE [Suspect]
     Active Substance: ALBUTEROL
     Indication: PRODUCT USED FOR UNKNOWN INDICATION
     Dosage: UNK

REACTIONS (3)
  - Dyspnoea [Recovered/Resolved]
  - Malaise [Recovered/Resolved]
  - Medication error [Unknown]

NARRATIVE: CASE EVENT DATE: 20160102
